FAERS Safety Report 7767938-9 (Version None)
Quarter: 2011Q3

REPORT INFORMATION
  Report Type: 
  Country: None (occurrence: None)
  Receive Date: 20110922
  Receipt Date: 20100909
  Transmission Date: 20111222
  Serious: No
  Sender: FDA-Public Use
  Company Number: US-ASTRAZENECA-2010SE42450

PATIENT
  Age: 51 Year
  Sex: Female

DRUGS (3)
  1. VALIUM [Concomitant]
  2. SEROQUEL [Suspect]
     Indication: BIPOLAR DISORDER
     Route: 048
     Dates: start: 20080101
  3. SEROQUEL [Suspect]
     Route: 048

REACTIONS (10)
  - TREMOR [None]
  - COLITIS [None]
  - NAUSEA [None]
  - PANIC DISORDER [None]
  - NERVOUSNESS [None]
  - MALAISE [None]
  - DIARRHOEA [None]
  - WITHDRAWAL SYNDROME [None]
  - VOMITING [None]
  - WRONG TECHNIQUE IN DRUG USAGE PROCESS [None]
